FAERS Safety Report 7980656-7 (Version None)
Quarter: 2011Q4

REPORT INFORMATION
  Report Type: 
  Country: None (occurrence: None)
  Receive Date: 20111214
  Receipt Date: 20111202
  Transmission Date: 20120403
  Serious: Yes (Life-Threatening, Other)
  Sender: FDA-Public Use
  Company Number: FR-PFIZER INC-2011152326

PATIENT
  Age: 60 Year
  Sex: Male

DRUGS (6)
  1. LOVENOX [Concomitant]
     Indication: THROMBOSIS PROPHYLAXIS
     Dosage: 8000 IU, 1X/DAY
     Route: 058
     Dates: start: 20110423
  2. PARACETAMOL [Concomitant]
     Indication: PAIN
     Dosage: 1000 MG, 1X/DAY
     Route: 048
     Dates: start: 20110423
  3. ALFUZOSIN HCL [Concomitant]
     Indication: PROSTATIC ADENOMA
     Dosage: 10 MG, 1X/DAY
     Route: 048
  4. SUTENT [Suspect]
     Indication: RENAL CELL CARCINOMA
     Dosage: 50 MG, UNK
     Route: 048
     Dates: start: 20110509, end: 20110520
  5. TAMSULOSIN [Concomitant]
     Indication: BENIGN PROSTATIC HYPERPLASIA
     Dosage: 0.4 MG, 1X/DAY
     Route: 048
  6. DURAGESIC-100 [Concomitant]
     Indication: PAIN
     Dosage: 75
     Route: 062
     Dates: start: 20110423

REACTIONS (1)
  - DERMATITIS BULLOUS [None]
